FAERS Safety Report 13261464 (Version 1)
Quarter: 2017Q1

REPORT INFORMATION
  Report Type: Spontaneous
  Country: US (occurrence: US)
  Receive Date: 20170222
  Receipt Date: 20170222
  Transmission Date: 20170428
  Serious: No
  Sender: FDA-Public Use
  Company Number: US-BAYER-2017-034039

PATIENT
  Age: 74 Year
  Sex: Male
  Weight: 95 kg

DRUGS (3)
  1. LOTRIMIN ULTRA ANTIFUNGAL [Suspect]
     Active Substance: BUTENAFINE HYDROCHLORIDE
     Route: 061
     Dates: start: 20170216
  2. HYDROCORTISON [HYDROCORTISONE ACETATE] [Concomitant]
  3. PREDNISONE. [Concomitant]
     Active Substance: PREDNISONE
     Dates: start: 20170216, end: 20170218

REACTIONS (2)
  - Feeling abnormal [Recovering/Resolving]
  - Dysgeusia [Not Recovered/Not Resolved]

NARRATIVE: CASE EVENT DATE: 20170217
